FAERS Safety Report 5317669-X (Version None)
Quarter: 2007Q2

REPORT INFORMATION
  Report Type: 
  Country: None (occurrence: None)
  Receive Date: 20070507
  Receipt Date: 20070425
  Transmission Date: 20071010
  Serious: Yes (Hospitalization)
  Sender: FDA-Public Use
  Company Number: PHEH2007US06286

PATIENT
  Sex: Female

DRUGS (1)
  1. ZELNORM [Suspect]
     Indication: CONSTIPATION
     Dosage: 6 MG, BID
     Route: 048
     Dates: end: 20070401

REACTIONS (4)
  - ABDOMINAL PAIN UPPER [None]
  - COLON OPERATION [None]
  - FLATULENCE [None]
  - GASTROINTESTINAL DISORDER [None]
